FAERS Safety Report 5899366-5 (Version None)
Quarter: 2008Q3

REPORT INFORMATION
  Report Type: 
  Country: None (occurrence: None)
  Receive Date: 20080924
  Receipt Date: 20080909
  Transmission Date: 20090109
  Serious: Yes (Death, Hospitalization)
  Sender: FDA-Public Use
  Company Number: ALK_00691_2008

PATIENT
  Sex: Male

DRUGS (1)
  1. VIVITROL [Suspect]
     Indication: ALCOHOLISM
     Dosage: (380 MG  1X/MONTH  INTRAMUSCULAR)
     Route: 030
     Dates: start: 20071005, end: 20080411

REACTIONS (2)
  - CARPAL TUNNEL SYNDROME [None]
  - TREATMENT NONCOMPLIANCE [None]
